FAERS Safety Report 7789632-0 (Version None)
Quarter: 2011Q3

REPORT INFORMATION
  Report Type: 
  Country: None (occurrence: None)
  Receive Date: 20110930
  Receipt Date: 20110922
  Transmission Date: 20111222
  Serious: Yes (Hospitalization, Other)
  Sender: FDA-Public Use
  Company Number: US-MERCK-1106USA03114

PATIENT
  Age: 71 Year
  Sex: Female
  Weight: 85 kg

DRUGS (6)
  1. DYAZIDE [Concomitant]
     Indication: HYPERTENSION
     Route: 065
     Dates: start: 19860101
  2. FOSAMAX [Suspect]
     Route: 048
     Dates: start: 20040526, end: 20090630
  3. LEVOXYL [Concomitant]
     Indication: THYROID DISORDER
     Route: 065
     Dates: start: 19880101
  4. OS-CAL [Concomitant]
     Indication: VITAMIN D DEFICIENCY
     Route: 048
     Dates: start: 19610101
  5. FOSAMAX [Suspect]
     Indication: OSTEOPOROSIS
     Route: 048
     Dates: start: 19960101, end: 20100101
  6. FOSAMAX [Suspect]
     Route: 048
     Dates: end: 20100503

REACTIONS (34)
  - FEMUR FRACTURE [None]
  - ATRIOVENTRICULAR BLOCK FIRST DEGREE [None]
  - OSTEOARTHRITIS [None]
  - HYPERLIPIDAEMIA [None]
  - MYALGIA [None]
  - INTERSTITIAL LUNG DISEASE [None]
  - WEIGHT DECREASED [None]
  - BLOOD CHOLESTEROL INCREASED [None]
  - CHRONIC OBSTRUCTIVE PULMONARY DISEASE [None]
  - LEUKOCYTOSIS [None]
  - SPINAL COMPRESSION FRACTURE [None]
  - RASH [None]
  - TENDONITIS [None]
  - RHINITIS ALLERGIC [None]
  - BACK PAIN [None]
  - AORTIC ARTERIOSCLEROSIS [None]
  - ADVERSE DRUG REACTION [None]
  - BURSITIS [None]
  - RASH MACULAR [None]
  - PAIN IN EXTREMITY [None]
  - URINARY TRACT INFECTION [None]
  - RENAL FAILURE CHRONIC [None]
  - RENAL FAILURE ACUTE [None]
  - OESTROGEN DEFICIENCY [None]
  - DEMENTIA [None]
  - GOUT [None]
  - INTERNATIONAL NORMALISED RATIO INCREASED [None]
  - THROMBOPHLEBITIS SUPERFICIAL [None]
  - NIGHT SWEATS [None]
  - BODY HEIGHT DECREASED [None]
  - FIBRIN D DIMER INCREASED [None]
  - LUNG DISORDER [None]
  - SPINAL OSTEOARTHRITIS [None]
  - DIABETES MELLITUS [None]
